FAERS Safety Report 5718726-6 (Version None)
Quarter: 2008Q2

REPORT INFORMATION
  Report Type: 
  Country: None (occurrence: None)
  Receive Date: 20080423
  Receipt Date: 20080409
  Transmission Date: 20081010
  Serious: Yes (Other)
  Sender: FDA-Public Use
  Company Number: MPS1-1000049

PATIENT
  Age: 8 Year
  Sex: Female

DRUGS (2)
  1. ALDURAZYME [Suspect]
     Indication: MUCOPOLYSACCHARIDOSIS I
     Dosage: 2500 IU, QW, IV BOLUS
     Route: 040
     Dates: start: 20040701
  2. ZYRTEC [Concomitant]

REACTIONS (7)
  - BLOOD PRESSURE INCREASED [None]
  - BODY TEMPERATURE DECREASED [None]
  - CHILLS [None]
  - HEART RATE INCREASED [None]
  - HYPERSENSITIVITY [None]
  - PALLOR [None]
  - PERIPHERAL COLDNESS [None]
